FAERS Safety Report 5984928-7 (Version None)
Quarter: 2008Q4

REPORT INFORMATION
  Report Type: 
  Country: None (occurrence: None)
  Receive Date: 20081202
  Receipt Date: 20081124
  Transmission Date: 20090506
  Serious: Yes (Other)
  Sender: FDA-Public Use
  Company Number: CHNY2008DE04084

PATIENT
  Age: 70 Year
  Sex: Male
  Weight: 78 kg

DRUGS (3)
  1. LAMISIL [Suspect]
     Indication: TINEA PEDIS
     Dosage: TROPICAL
     Route: 061
     Dates: start: 20081023, end: 20081024
  2. CETIRIZINE HCL [Concomitant]
  3. PREDNISOLONE [Concomitant]

REACTIONS (5)
  - BLISTER [None]
  - OEDEMA PERIPHERAL [None]
  - OPEN WOUND [None]
  - OROPHARYNGEAL BLISTERING [None]
  - SKIN EXFOLIATION [None]
